FAERS Safety Report 23906719 (Version 3)
Quarter: 2024Q2

REPORT INFORMATION
  Report Type: Report from Study
  Country: JP (occurrence: JP)
  Receive Date: 20240528
  Receipt Date: 20240614
  Transmission Date: 20240716
  Serious: Yes (Death)
  Sender: FDA-Public Use
  Company Number: JP-MTPC-MTPC2022-0012785

PATIENT
  Age: 64 Year
  Sex: Female
  Weight: 59.7 kg

DRUGS (13)
  1. VADADUSTAT [Suspect]
     Active Substance: VADADUSTAT
     Indication: Nephrogenic anaemia
     Dosage: 300 MILLIGRAM, QD
     Route: 048
     Dates: start: 20220329, end: 20220418
  2. DARBEPOETIN ALFA [Concomitant]
     Active Substance: DARBEPOETIN ALFA
     Indication: Nephrogenic anaemia
     Dosage: 30 MICROGRAM, SINGLE
     Route: 042
     Dates: start: 20220419, end: 20220419
  3. ROSUVASTATIN CALCIUM [Concomitant]
     Active Substance: ROSUVASTATIN CALCIUM
     Indication: Product used for unknown indication
     Dosage: 2.5 MILLIGRAM, QD
     Route: 048
  4. AMLODIPINE BESYLATE [Concomitant]
     Active Substance: AMLODIPINE BESYLATE
     Indication: Product used for unknown indication
     Dosage: 7.5 MILLIGRAM, QD
     Route: 048
  5. CARVEDILOL [Concomitant]
     Active Substance: CARVEDILOL
     Indication: Product used for unknown indication
     Dosage: 10 MILLIGRAM, QD
     Route: 048
  6. LINAGLIPTIN [Concomitant]
     Active Substance: LINAGLIPTIN
     Indication: Illness
     Dosage: 5 MILLIGRAM, QD
     Route: 048
  7. MIGLITOL [Concomitant]
     Active Substance: MIGLITOL
     Indication: Illness
     Dosage: 75 MILLIGRAM, QD
     Route: 048
  8. TRESIBA [Concomitant]
     Active Substance: INSULIN DEGLUDEC
     Indication: Illness
     Dosage: 10 INTERNATIONAL UNIT, QD
     Route: 051
  9. BUDEFORU [Concomitant]
     Indication: Illness
     Dosage: 2 INHALATIONS, QD
     Route: 055
  10. LOKELMA [Concomitant]
     Active Substance: SODIUM ZIRCONIUM CYCLOSILICATE
     Indication: Illness
     Dosage: 5 GRAM, QD
     Route: 048
  11. BROMFENAC SODIUM [Concomitant]
     Active Substance: BROMFENAC SODIUM
     Indication: Illness
     Dosage: 2 GTT DROPS, QD
     Route: 031
  12. DIQUAFOSOL TETRASODIUM [Concomitant]
     Active Substance: DIQUAFOSOL TETRASODIUM
     Indication: Illness
     Dosage: 4 GTT DROPS, QD
     Route: 031
  13. CALCIUM POLYSTYRENE SULFONATE [Concomitant]
     Active Substance: CALCIUM POLYSTYRENE SULFONATE
     Indication: Illness
     Dosage: 25 GRAM, QD
     Route: 048

REACTIONS (2)
  - Subdural haematoma [Fatal]
  - Diabetic retinopathy [Unknown]

NARRATIVE: CASE EVENT DATE: 20220404
